FAERS Safety Report 6295208-7 (Version None)
Quarter: 2009Q3

REPORT INFORMATION
  Report Type: 
  Country: None (occurrence: None)
  Receive Date: 20090803
  Receipt Date: 20090724
  Transmission Date: 20100115
  Serious: Yes (Other)
  Sender: FDA-Public Use
  Company Number: DE-ABBOTT-09P-062-0588072-00

PATIENT
  Age: 37 Year
  Sex: Female

DRUGS (1)
  1. ENANTONE MONATSDEPOT [Suspect]
     Indication: ENDOMETRIOSIS
     Route: 058
     Dates: start: 20090501

REACTIONS (3)
  - EXTRASYSTOLES [None]
  - HOT FLUSH [None]
  - VENTRICULAR TACHYCARDIA [None]
